FAERS Safety Report 17224618 (Version 1)
Quarter: 2020Q1

REPORT INFORMATION
  Report Type: Spontaneous
  Country: US (occurrence: US)
  Receive Date: 20191231
  Receipt Date: 20191231
  Transmission Date: 20200409
  Serious: Yes (Death)
  Sender: FDA-Public Use
  Company Number: None

PATIENT
  Age: 78 Year
  Sex: Male
  Weight: 65.57 kg

DRUGS (22)
  1. HALOPERIDOL. [Concomitant]
     Active Substance: HALOPERIDOL
  2. LOPERAMIDE [Concomitant]
     Active Substance: LOPERAMIDE
  3. MILK OF MAG [Concomitant]
  4. PREDNISONE. [Concomitant]
     Active Substance: PREDNISONE
  5. HYDROXYZINE [Concomitant]
     Active Substance: HYDROXYZINE HYDROCHLORIDE
  6. ONDANSETRON [Concomitant]
     Active Substance: ONDANSETRON
  7. GABAPENTIN. [Concomitant]
     Active Substance: GABAPENTIN
  8. ACIDOPHILUS [Concomitant]
     Active Substance: LACTOBACILLUS ACIDOPHILUS
  9. CALCIUM [Concomitant]
     Active Substance: CALCIUM
  10. COLACE [Concomitant]
     Active Substance: DOCUSATE SODIUM
  11. ENTACAPONE. [Concomitant]
     Active Substance: ENTACAPONE
  12. RASAGILINE. [Concomitant]
     Active Substance: RASAGILINE
  13. CARBIDOPA/LEVODOPA [Concomitant]
     Active Substance: CARBIDOPA\LEVODOPA
  14. PEG [Concomitant]
     Active Substance: POLYETHYLENE GLYCOLS
  15. MTX [Concomitant]
     Active Substance: METHOTREXATE SODIUM
  16. BEXAROTENE. [Suspect]
     Active Substance: BEXAROTENE
     Indication: CUTANEOUS T-CELL LYMPHOMA
     Route: 048
     Dates: start: 20191109
  17. APAP [Concomitant]
     Active Substance: ACETAMINOPHEN
  18. ALBUTEROL HFA [Concomitant]
     Active Substance: ALBUTEROL SULFATE
  19. BISACODYL. [Concomitant]
     Active Substance: BISACODYL
  20. FLOMAX [Concomitant]
     Active Substance: TAMSULOSIN HYDROCHLORIDE
  21. FOLIC ACID. [Concomitant]
     Active Substance: FOLIC ACID
  22. PAROXETINE. [Concomitant]
     Active Substance: PAROXETINE

REACTIONS (1)
  - Death [None]
